FAERS Safety Report 7057273-9 (Version None)
Quarter: 2010Q4

REPORT INFORMATION
  Report Type: 
  Country: None (occurrence: None)
  Receive Date: 20101022
  Receipt Date: 20101019
  Transmission Date: 20110411
  Serious: Yes (Other)
  Sender: FDA-Public Use
  Company Number: US-MYLANLABS-2010S1017564

PATIENT
  Age: 18 Year
  Sex: Male

DRUGS (1)
  1. AMNESTEEM [Suspect]
     Indication: ACNE
     Route: 048
     Dates: start: 20100622, end: 20100823

REACTIONS (4)
  - DECREASED APPETITE [None]
  - DEHYDRATION [None]
  - PENILE HAEMORRHAGE [None]
  - WEIGHT DECREASED [None]
